FAERS Safety Report 6025676-7 (Version None)
Quarter: 2008Q4

REPORT INFORMATION
  Report Type: 
  Country: None (occurrence: None)
  Receive Date: 20081231
  Receipt Date: 20081217
  Transmission Date: 20090506
  Serious: Yes (Death)
  Sender: FDA-Public Use
  Company Number: JP-ROCHE-605080

PATIENT
  Age: 76 Year
  Sex: Male
  Weight: 62 kg

DRUGS (2)
  1. TAMIFLU [Suspect]
     Indication: INFLUENZA
     Route: 048
  2. METHYLPREDNISOLONE SODIUM SUCCINATE [Concomitant]
     Route: 041

REACTIONS (2)
  - MULTI-ORGAN FAILURE [None]
  - SHOCK [None]
